FAERS Safety Report 14452209 (Version 1)
Quarter: 2018Q1

REPORT INFORMATION
  Report Type: Spontaneous
  Country: FR (occurrence: FR)
  Receive Date: 20180129
  Receipt Date: 20180129
  Transmission Date: 20180509
  Serious: Yes (Life-Threatening, Hospitalization)
  Sender: FDA-Public Use
  Company Number: FR-BEH-2017078928

PATIENT
  Age: 58 Year
  Sex: Male
  Weight: 112 kg

DRUGS (4)
  1. PRIVIGEN [Suspect]
     Active Substance: HUMAN IMMUNOGLOBULIN G
     Dosage: 20 G, QD; POSOLOGY: 220 G OVER 5 DAYS
     Route: 042
     Dates: start: 20161219, end: 20161222
  2. PRIVIGEN [Suspect]
     Active Substance: HUMAN IMMUNOGLOBULIN G
     Indication: POLYNEUROPATHY
     Dosage: 40 G, QD; POSOLOGY: 220 G OVER 5 DAYS
     Route: 042
     Dates: start: 20170123, end: 20170127
  3. PRIVIGEN [Suspect]
     Active Substance: HUMAN IMMUNOGLOBULIN G
     Dosage: 5 G, QD; POSOLOGY: 220 G OVER 5 DAYS
     Route: 042
     Dates: start: 20170123, end: 20170127
  4. PRIVIGEN [Suspect]
     Active Substance: HUMAN IMMUNOGLOBULIN G
     Dosage: 20 G, QD; POSOLOGY: 220 G OVER 5 DAYS
     Route: 042
     Dates: start: 20161219, end: 20161222

REACTIONS (2)
  - Abdominal pain [Not Recovered/Not Resolved]
  - Portosplenomesenteric venous thrombosis [Not Recovered/Not Resolved]

NARRATIVE: CASE EVENT DATE: 20170303
